FAERS Safety Report 5926370-0 (Version None)
Quarter: 2008Q4

REPORT INFORMATION
  Report Type: 
  Country: None (occurrence: None)
  Receive Date: 20081022
  Receipt Date: 20081013
  Transmission Date: 20090506
  Serious: Yes (Hospitalization, Other)
  Sender: FDA-Public Use
  Company Number: US-BAYER-200812913BCC

PATIENT
  Age: 54 Year
  Sex: Male
  Weight: 136 kg

DRUGS (13)
  1. ASPIRIN [Suspect]
     Indication: ISCHAEMIC HEART DISEASE PROPHYLAXIS
     Route: 048
     Dates: start: 20061103, end: 20070101
  2. PLAVIX [Suspect]
     Indication: CARDIAC OPERATION
     Dates: start: 20061103
  3. FUROSEMIDE [Suspect]
  4. METOPROLOL SUCCINATE [Concomitant]
  5. SIMVASTATIN [Concomitant]
  6. IRBESARTAN [Concomitant]
  7. NICOTINIC ACID [Concomitant]
  8. ATENOLOL [Concomitant]
     Dosage: TOTAL DAILY DOSE: 200 MG
  9. MULTI-VITAMIN [Concomitant]
     Route: 048
  10. FISH OIL [Concomitant]
  11. VITAMIN B-12 [Concomitant]
  12. LANSOPRAZOLE [Concomitant]
  13. AVAPRO [Concomitant]

REACTIONS (6)
  - BARRETT'S OESOPHAGUS [None]
  - DEAFNESS UNILATERAL [None]
  - GASTROINTESTINAL ULCER HAEMORRHAGE [None]
  - INTESTINAL PERFORATION [None]
  - NERVE INJURY [None]
  - THROMBOSIS [None]
